FAERS Safety Report 10257696 (Version 1)
Quarter: 2014Q2

REPORT INFORMATION
  Report Type: Other
  Country: GB (occurrence: GB)
  Receive Date: 20140625
  Receipt Date: 20140625
  Transmission Date: 20141212
  Serious: Yes (Life-Threatening)
  Sender: FDA-Public Use
  Company Number: GB-PERRIGO-14GB005995

PATIENT
  Age: 5 Year
  Sex: Female
  Weight: 18.4 kg

DRUGS (3)
  1. IBUPROFEN 20 MG/ML 16028/0034 [Suspect]
     Indication: PAIN
     Dosage: 150 MG, TID
     Route: 048
     Dates: start: 20140521
  2. IBUPROFEN 20 MG/ML 16028/0034 [Suspect]
     Indication: TONSILLITIS
  3. PENICILLIN /00000906/ [Suspect]
     Indication: TONSILLITIS
     Dosage: 125 MG, QID
     Route: 048
     Dates: start: 20140521, end: 20140521

REACTIONS (2)
  - Toxic epidermal necrolysis [Not Recovered/Not Resolved]
  - Blister [Unknown]
